FAERS Safety Report 5430946-7 (Version None)
Quarter: 2007Q3

REPORT INFORMATION
  Report Type: 
  Country: None (occurrence: None)
  Receive Date: 20070828
  Receipt Date: 20070813
  Transmission Date: 20080115
  Serious: Yes (Hospitalization, Other)
  Sender: FDA-Public Use
  Company Number: 2007US-09340

PATIENT
  Age: 17 Year
  Sex: Male

DRUGS (2)
  1. ISOPTIN SR [Suspect]
     Indication: SUICIDE ATTEMPT
     Dosage: 120 MG, 50 TABS IN 1 DOSE, ORAL
     Route: 048
  2. OXYGEN INHALATION GAS [Suspect]
     Indication: DRUG USE FOR UNKNOWN INDICATION
     Dosage: 4-6L/MIN VIA NASAL TUBE, NASAL
     Route: 045

REACTIONS (18)
  - BRADYCARDIA [None]
  - BUNDLE BRANCH BLOCK RIGHT [None]
  - CARDIOVASCULAR INSUFFICIENCY [None]
  - DRUG TOXICITY [None]
  - HYPERGLYCAEMIA [None]
  - HYPOKALAEMIA [None]
  - INTENTIONAL OVERDOSE [None]
  - LEUKOCYTOSIS [None]
  - METABOLIC ACIDOSIS [None]
  - PLEURAL EFFUSION [None]
  - PULMONARY CONGESTION [None]
  - RESPIRATORY ACIDOSIS [None]
  - SHOCK [None]
  - SINOATRIAL BLOCK [None]
  - SINUS ARREST [None]
  - SOMNOLENCE [None]
  - SUICIDE ATTEMPT [None]
  - VOMITING [None]
